FAERS Safety Report 15999974 (Version 1)
Quarter: 2019Q1

REPORT INFORMATION
  Report Type: Spontaneous
  Country: CA (occurrence: CA)
  Receive Date: 20190225
  Receipt Date: 20190225
  Transmission Date: 20190418
  Serious: Yes (Other)
  Sender: FDA-Public Use
  Company Number: CA-PFIZER INC-2019079515

PATIENT
  Age: 32 Year
  Sex: Female
  Weight: 59 kg

DRUGS (2)
  1. DESVENLAFAXINE SUCCINATE MONOHYDRATE [Suspect]
     Active Substance: DESVENLAFAXINE SUCCINATE
     Indication: DEPRESSION
     Dosage: 50 MG, 1X/DAY (REPORTED AS 1 EVERY 1DAY)
     Route: 048
  2. DESVENLAFAXINE SUCCINATE MONOHYDRATE [Suspect]
     Active Substance: DESVENLAFAXINE SUCCINATE
     Indication: ANXIETY

REACTIONS (6)
  - Fatigue [Recovering/Resolving]
  - Crying [Recovering/Resolving]
  - Poor quality sleep [Recovering/Resolving]
  - Product substitution issue [Unknown]
  - Mood altered [Recovering/Resolving]
  - Asthenia [Recovering/Resolving]
